FAERS Safety Report 9173429 (Version 2)
Quarter: 2013Q2

REPORT INFORMATION
  Report Type: Spontaneous
  Country: US (occurrence: US)
  Receive Date: 20130320
  Receipt Date: 20130509
  Transmission Date: 20140414
  Serious: Yes (Hospitalization)
  Sender: FDA-Public Use
  Company Number: US-GENZYME-CERZ-1002856

PATIENT
  Sex: Male
  Weight: 91.2 kg

DRUGS (1)
  1. CEREZYME [Suspect]
     Indication: GAUCHER^S DISEASE
     Dosage: 57 U/KG, Q2W
     Route: 042
     Dates: start: 20110808

REACTIONS (1)
  - Adverse event [Unknown]
